FAERS Safety Report 20953907 (Version 1)
Quarter: 2022Q2

REPORT INFORMATION
  Report Type: Other
  Country: CA (occurrence: CA)
  Receive Date: 20220614
  Receipt Date: 20220614
  Transmission Date: 20220721
  Serious: Yes (Other)
  Sender: FDA-Public Use
  Company Number: CA-CELLTRION INC.-2022CA008815

PATIENT

DRUGS (2)
  1. TRASTUZUMAB [Suspect]
     Active Substance: TRASTUZUMAB
     Indication: HER2 positive breast cancer
     Dosage: 169 MILLIGRAM, 1 EVERY 3 WEEKS
     Route: 042
  2. TRASTUZUMAB [Suspect]
     Active Substance: TRASTUZUMAB
     Dosage: 208 MILLIGRAM, 1 EVERY 3 WEEKS
     Route: 042

REACTIONS (4)
  - Bradycardia [Unknown]
  - Dyspnoea [Unknown]
  - Fatigue [Unknown]
  - Malignant neoplasm progression [Unknown]
